FAERS Safety Report 13231925 (Version 1)
Quarter: 2017Q1

REPORT INFORMATION
  Report Type: Spontaneous
  Country: US (occurrence: US)
  Receive Date: 20170214
  Receipt Date: 20170214
  Transmission Date: 20170428
  Serious: No
  Sender: FDA-Public Use
  Company Number: US-AMAG PHARMACEUTICALS, INC.-AMAG201700496

PATIENT

DRUGS (1)
  1. MAKENA [Suspect]
     Active Substance: HYDROXYPROGESTERONE CAPROATE
     Indication: PREMATURE DELIVERY
     Dosage: 250 MG, WEEKLY
     Route: 030
     Dates: start: 20170105

REACTIONS (7)
  - Injection site extravasation [Unknown]
  - Injection site pruritus [Not Recovered/Not Resolved]
  - Medication error [Recovered/Resolved]
  - Drug administered at inappropriate site [Recovered/Resolved]
  - Injection site hypoaesthesia [Unknown]
  - Injection site discomfort [Unknown]
  - Injection site urticaria [Not Recovered/Not Resolved]

NARRATIVE: CASE EVENT DATE: 20170105
